FAERS Safety Report 4408270-0 (Version None)
Quarter: 2004Q3

REPORT INFORMATION
  Report Type: 
  Country: None (occurrence: None)
  Receive Date: 20040722
  Receipt Date: 20040709
  Transmission Date: 20050211
  Serious: Yes (Hospitalization)
  Sender: FDA-Public Use
  Company Number: US-JNJFOC-20040608373

PATIENT
  Age: 75 Year
  Sex: Female

DRUGS (14)
  1. INFLIXIMAB (INFLIXIMAB, RECOMBINANT) LYOPHILIZED POWDER [Suspect]
     Indication: RHEUMATOID ARTHRITIS
     Dosage: 3 MG/KG, 1 IN 8 WEEK, INTRAVENOUS
     Route: 042
     Dates: start: 20010520
  2. INFLIXIMAB (INFLIXIMAB, RECOMBINANT) LYOPHILIZED POWDER [Suspect]
     Indication: RHEUMATOID ARTHRITIS
     Dosage: 3 MG/KG, 1 IN 8 WEEK, INTRAVENOUS
     Route: 042
     Dates: start: 20040316
  3. FOLIC ACID(CAPSULES) FOLIC ACID [Concomitant]
  4. ACTONEL (TABLETS) RISEDRONATE SODIUM [Concomitant]
  5. ULTRACET [Concomitant]
  6. BEXTRA (BUCINDOLOL HYDROCHLORIDE) TABLETS [Concomitant]
  7. NEURONTIN [Concomitant]
  8. CALCIUM CARBONATE/VITAMIN D (CALCIUM CARBONATE) [Concomitant]
  9. PLAQUENIL [Concomitant]
  10. ATENOLOL [Concomitant]
  11. ASPARIN (ACETYLSALICYLIC ACID) [Concomitant]
  12. VITAMIN E [Concomitant]
  13. MULTIVITAMIN [Concomitant]
  14. METHOTREXATE SODIUM [Concomitant]

REACTIONS (11)
  - BLOOD GLUCOSE INCREASED [None]
  - BLOOD POTASSIUM DECREASED [None]
  - BLOOD SODIUM DECREASED [None]
  - BOWEL SOUNDS ABNORMAL [None]
  - DEHYDRATION [None]
  - HAEMATOCRIT DECREASED [None]
  - OESOPHAGEAL CANDIDIASIS [None]
  - OSTEOPOROSIS [None]
  - PANCREATITIS [None]
  - SPINAL COLUMN STENOSIS [None]
  - SPINAL FUSION ACQUIRED [None]
